FAERS Safety Report 10286430 (Version 2)
Quarter: 2016Q4

REPORT INFORMATION
  Report Type: Spontaneous
  Country: US (occurrence: US)
  Receive Date: 20140709
  Receipt Date: 20161014
  Transmission Date: 20170206
  Serious: No
  Sender: FDA-Public Use
  Company Number: US-PFIZER INC-2014190698

PATIENT
  Age: 62 Year
  Sex: Female
  Weight: 53.7 kg

DRUGS (1)
  1. PRISTIQ EXTENDED-RELEASE [Suspect]
     Active Substance: DESVENLAFAXINE SUCCINATE
     Dosage: UNK

REACTIONS (3)
  - Intentional product misuse [Unknown]
  - Blood magnesium decreased [Unknown]
  - Drug ineffective [Unknown]
